FAERS Safety Report 4340880-1 (Version None)
Quarter: 2004Q2

REPORT INFORMATION
  Report Type: 
  Country: None (occurrence: None)
  Receive Date: 20040413
  Receipt Date: 20040407
  Transmission Date: 20050107
  Serious: Yes (Other)
  Sender: FDA-Public Use
  Company Number: 2004200020US

PATIENT
  Age: 79 Year
  Sex: Female
  Weight: 99.8 kg

DRUGS (12)
  1. CELEBREX [Suspect]
  2. VIOXX [Suspect]
  3. ASPIRIN [Concomitant]
  4. ALLOPURINOL [Concomitant]
  5. PROPRANOLOL [Concomitant]
  6. LIPITOR [Concomitant]
  7. GLUCOTROL [Concomitant]
  8. FUROSEMIDE [Concomitant]
  9. MULTIVITAMIN [Concomitant]
  10. LIBRIUM [Concomitant]
  11. TRICOR [Concomitant]
  12. LORTAB [Concomitant]

REACTIONS (5)
  - FALL [None]
  - FUNGAL INFECTION [None]
  - GENITAL PRURITUS FEMALE [None]
  - ROTATOR CUFF SYNDROME [None]
  - TRIPLE VESSEL BYPASS GRAFT [None]
